FAERS Safety Report 13385022 (Version 1)
Quarter: 2017Q1

REPORT INFORMATION
  Report Type: Spontaneous
  Country: US (occurrence: US)
  Receive Date: 20170329
  Receipt Date: 20170329
  Transmission Date: 20170429
  Serious: No
  Sender: FDA-Public Use
  Company Number: US-SMITH AND NEPHEW, INC-2016SMT00891

PATIENT
  Sex: Female

DRUGS (1)
  1. COLLAGENASE SANTYL [Suspect]
     Active Substance: COLLAGENASE CLOSTRIDIUM HISTOLYTICUM
     Indication: ACCIDENTAL EXPOSURE TO PRODUCT
     Dosage: UNK
     Dates: start: 20161005, end: 20161005

REACTIONS (3)
  - Eye irritation [Recovered/Resolved]
  - Paraesthesia [Recovered/Resolved]
  - Accidental exposure to product [Recovered/Resolved]

NARRATIVE: CASE EVENT DATE: 20161005
